FAERS Safety Report 7319534-5 (Version None)
Quarter: 2011Q1

REPORT INFORMATION
  Report Type: 
  Country: None (occurrence: None)
  Receive Date: 20110228
  Receipt Date: 20100518
  Transmission Date: 20110831
  Serious: No
  Sender: FDA-Public Use
  Company Number: A0858437A

PATIENT
  Age: 20 Year
  Sex: Female

DRUGS (1)
  1. LAMICTAL [Suspect]
     Dosage: 200MG PER DAY
     Route: 048

REACTIONS (3)
  - URTICARIA [None]
  - FUNGAL INFECTION [None]
  - RASH [None]
